FAERS Safety Report 4717346-X (Version None)
Quarter: 2005Q3

REPORT INFORMATION
  Report Type: 
  Country: None (occurrence: None)
  Receive Date: 20050718
  Receipt Date: 20050714
  Transmission Date: 20060218
  Serious: Yes (Other)
  Sender: FDA-Public Use
  Company Number: 005200

PATIENT
  Sex: Female

DRUGS (5)
  1. MEDROXYPROGESTERONE ACETATE [Suspect]
     Dosage: ORAL
     Route: 048
     Dates: start: 19830101, end: 20010401
  2. PREMARIN [Suspect]
     Dosage: ORAL
     Route: 048
     Dates: start: 19830101, end: 20010401
  3. PROVERA [Suspect]
     Dosage: ORAL
     Route: 048
     Dates: start: 19830101, end: 20010401
  4. PREMPRO [Suspect]
     Dosage: ORAL
     Route: 048
     Dates: start: 19970101, end: 20010401
  5. PREMPHASE (PREMARIN;CYCRIN 14/14) [Suspect]
     Dosage: ORAL
     Route: 048
     Dates: start: 19970101, end: 20010401

REACTIONS (1)
  - BREAST CANCER FEMALE [None]
